FAERS Safety Report 20790547 (Version 1)
Quarter: 2022Q2

REPORT INFORMATION
  Report Type: Spontaneous
  Country: US (occurrence: None)
  Receive Date: 20220505
  Receipt Date: 20220505
  Transmission Date: 20220720
  Serious: No
  Sender: FDA-Public Use
  Company Number: None

PATIENT
  Age: 75 Year
  Sex: Male

DRUGS (10)
  1. VOTRIENT [Suspect]
     Active Substance: PAZOPANIB HYDROCHLORIDE
     Indication: Renal cancer
     Dosage: FREQUENCY : DAILY;?
     Route: 048
     Dates: start: 20210511
  2. ASPIR-LOW [Concomitant]
  3. ATORVASTATIN [Concomitant]
  4. FERROURS SULFATE [Concomitant]
  5. MEGESTROL ACETATE [Concomitant]
  6. MIDODRINE [Concomitant]
  7. ONDANSETRON [Concomitant]
  8. PROPANEFENONE HCL [Concomitant]
  9. SYNTHROID [Concomitant]
  10. ZYPREXA [Concomitant]

REACTIONS (1)
  - Supportive care [None]
